FAERS Safety Report 9427684 (Version 1)
Quarter: 2013Q3

REPORT INFORMATION
  Report Type: Spontaneous
  Country: US (occurrence: US)
  Receive Date: 20130730
  Receipt Date: 20130730
  Transmission Date: 20140515
  Serious: No
  Sender: FDA-Public Use
  Company Number: US-ABBOTT-12P-163-0968986-00

PATIENT
  Age: 76 Year
  Sex: Female
  Weight: 68.1 kg

DRUGS (10)
  1. NIASPAN (COATED) 500MG [Suspect]
     Indication: BLOOD CHOLESTEROL
     Route: 048
     Dates: start: 201207, end: 201207
  2. CALCIUM [Concomitant]
     Indication: MINERAL SUPPLEMENTATION
  3. GLIPIZIDE [Concomitant]
     Indication: DIABETES MELLITUS
  4. LOVASTATIN [Concomitant]
     Indication: PRODUCT USED FOR UNKNOWN INDICATION
  5. LISINOPRIL [Concomitant]
     Indication: HYPERTENSION
  6. JANUVIA [Concomitant]
     Indication: DIABETES MELLITUS
  7. ASPIRIN [Concomitant]
     Indication: CARDIAC DISORDER
     Dosage: 81MG DAILY
  8. GABAPENTIN [Concomitant]
     Indication: TREMOR
  9. FISH OIL [Concomitant]
     Indication: PRODUCT USED FOR UNKNOWN INDICATION
  10. TRAZODONE [Concomitant]
     Indication: INSOMNIA

REACTIONS (2)
  - Pruritus generalised [Recovered/Resolved]
  - Feeling hot [Recovered/Resolved]
